FAERS Safety Report 24224095 (Version 1)
Quarter: 2024Q3

REPORT INFORMATION
  Report Type: Spontaneous
  Country: US (occurrence: US)
  Receive Date: 20240819
  Receipt Date: 20240819
  Transmission Date: 20241017
  Serious: Yes (Other)
  Sender: JOHNSON AND JOHNSON
  Company Number: US-JNJFOC-20240825058

PATIENT
  Sex: Male

DRUGS (1)
  1. BALVERSA [Suspect]
     Active Substance: ERDAFITINIB
     Indication: Product used for unknown indication
     Dosage: 2 TABLETS PER DAY
     Route: 065

REACTIONS (10)
  - Blindness [Unknown]
  - Throat irritation [Unknown]
  - Faeces discoloured [Unknown]
  - Dysphagia [Unknown]
  - Oral discomfort [Unknown]
  - Eye swelling [Unknown]
  - Rash [Unknown]
  - Skin exfoliation [Unknown]
  - Epistaxis [Unknown]
  - Diarrhoea [Unknown]
